FAERS Safety Report 4863838-2 (Version None)
Quarter: 2005Q4

REPORT INFORMATION
  Report Type: 
  Country: None (occurrence: None)
  Receive Date: 20051222
  Receipt Date: 20051006
  Transmission Date: 20060501
  Serious: No
  Sender: FDA-Public Use
  Company Number: US-GLAXOSMITHKLINE-A0577387A

PATIENT
  Age: 46 Year
  Sex: Male

DRUGS (7)
  1. FLONASE [Suspect]
     Dosage: 2SPR PER DAY
     Route: 045
  2. METOPROLOL [Concomitant]
  3. LISINOPRIL [Concomitant]
  4. VYTORIN [Concomitant]
  5. TRAZODONE HCL [Concomitant]
  6. ECOTRIN [Concomitant]
  7. LORATADINE [Concomitant]

REACTIONS (7)
  - BALANCE DISORDER [None]
  - CHEST DISCOMFORT [None]
  - EYE IRRITATION [None]
  - HEADACHE [None]
  - HYPERHIDROSIS [None]
  - PHARMACEUTICAL PRODUCT COMPLAINT [None]
  - THROAT TIGHTNESS [None]
